FAERS Safety Report 4288622-2 (Version None)
Quarter: 2004Q1

REPORT INFORMATION
  Report Type: 
  Country: None (occurrence: None)
  Receive Date: 20040209
  Receipt Date: 20040128
  Transmission Date: 20041129
  Serious: Yes (Other)
  Sender: FDA-Public Use
  Company Number: GB-GLAXOSMITHKLINE-B0321582A

PATIENT
  Age: 49 Year
  Sex: Male
  Weight: 89.5 kg

DRUGS (2)
  1. RANITIDINE [Suspect]
     Indication: DYSPEPSIA
     Route: 048
     Dates: start: 20040119, end: 20040123
  2. SALBUTAMOL [Concomitant]
     Route: 065
     Dates: start: 20000414

REACTIONS (1)
  - WHEEZING [None]
